FAERS Safety Report 5130185-3 (Version None)
Quarter: 2006Q4

REPORT INFORMATION
  Report Type: 
  Country: None (occurrence: None)
  Receive Date: 20061013
  Receipt Date: 20060926
  Transmission Date: 20070319
  Serious: Yes (Other)
  Sender: FDA-Public Use
  Company Number: US200606002249

PATIENT
  Age: 40 Year
  Sex: Male

DRUGS (1)
  1. CYMBALTA [Suspect]
     Indication: HEADACHE
     Dates: start: 20041201, end: 20050601

REACTIONS (5)
  - BLINDNESS [None]
  - CORNEAL DEPOSITS [None]
  - IMPAIRED DRIVING ABILITY [None]
  - OPTIC NERVE INJURY [None]
  - VISUAL DISTURBANCE [None]
